FAERS Safety Report 5786512-7 (Version None)
Quarter: 2008Q2

REPORT INFORMATION
  Report Type: 
  Country: None (occurrence: None)
  Receive Date: 20080624
  Receipt Date: 20080606
  Transmission Date: 20081010
  Serious: No
  Sender: FDA-Public Use
  Company Number: US-BOEHRINGER INGELHEIM GMBH, GERMANY-2008-BP-08894BP

PATIENT
  Age: 83 Year
  Sex: Female

DRUGS (4)
  1. COMBIVENT [Suspect]
     Indication: CHRONIC OBSTRUCTIVE PULMONARY DISEASE
     Dosage: 1 PUFF 4-8 X DAILY
     Route: 055
     Dates: start: 20050101
  2. COMBIVENT [Suspect]
     Indication: ASTHMA
  3. THEOPHYLLINE [Concomitant]
  4. ALBUTEROL [Concomitant]

REACTIONS (2)
  - CATARACT [None]
  - DRUG INEFFECTIVE [None]
